FAERS Safety Report 18487570 (Version 1)
Quarter: 2020Q4

REPORT INFORMATION
  Report Type: Spontaneous
  Country: US (occurrence: US)
  Receive Date: 20201110
  Receipt Date: 20201110
  Transmission Date: 20210114
  Serious: Yes (Hospitalization, Other)
  Sender: FDA-Public Use
  Company Number: US-PURDUE-USA-2020-0166882

PATIENT
  Age: 67 Year
  Sex: Male

DRUGS (6)
  1. OXYCONTIN [Suspect]
     Active Substance: OXYCODONE HYDROCHLORIDE
     Indication: PAIN
     Dosage: 40 MG, TID, 2 PILLS
     Route: 048
     Dates: start: 1998
  2. FENTANYL. [Suspect]
     Active Substance: FENTANYL
     Indication: BACK PAIN
     Dosage: 100 MG PATCH , TO BE CHNAGED EVERY 3 DAYS
     Route: 065
  3. OXYCODONE HCL TABLETS (RHODES 91-490) [Suspect]
     Active Substance: OXYCODONE HYDROCHLORIDE
     Indication: PRODUCT USED FOR UNKNOWN INDICATION
     Dosage: UNK
     Route: 048
  4. OXYCODONE HYDROCHLORIDE (SIMILAR TO NDA 22-272) [Suspect]
     Active Substance: OXYCODONE HYDROCHLORIDE
     Indication: BACK PAIN
     Dosage: 15 MG, DAILY, PRN, 8 PILLS
     Route: 048
  5. OXYCONTIN [Suspect]
     Active Substance: OXYCODONE HYDROCHLORIDE
     Indication: BACK PAIN
  6. OXYCODONE HCL CR TABLETS (SIMILAR TO NDA 22-272) [Suspect]
     Active Substance: OXYCODONE HYDROCHLORIDE
     Indication: PRODUCT USED FOR UNKNOWN INDICATION
     Dosage: UNK
     Route: 048

REACTIONS (18)
  - Respiratory depression [Unknown]
  - General physical condition abnormal [Unknown]
  - Dry mouth [Unknown]
  - Drug withdrawal syndrome [Unknown]
  - Dyspnoea [Unknown]
  - Gait disturbance [Unknown]
  - Accidental overdose [Unknown]
  - Drug dependence [Unknown]
  - Lung disorder [Unknown]
  - Nausea [Unknown]
  - Immunodeficiency [Unknown]
  - Hospitalisation [Unknown]
  - Lethargy [Unknown]
  - Emotional distress [Unknown]
  - Somnolence [Unknown]
  - Sleep apnoea syndrome [Unknown]
  - Hyperhidrosis [Unknown]
  - Constipation [Unknown]

NARRATIVE: CASE EVENT DATE: 201502
